FAERS Safety Report 19981123 (Version 4)
Quarter: 2022Q4

REPORT INFORMATION
  Report Type: Spontaneous
  Country: CA (occurrence: CA)
  Receive Date: 20211021
  Receipt Date: 20221104
  Transmission Date: 20230113
  Serious: Yes (Other)
  Sender: FDA-Public Use
  Company Number: CA-PFIZER INC-2019554899

PATIENT
  Age: 9 Year
  Sex: Female

DRUGS (6)
  1. RAPAMUNE [Suspect]
     Active Substance: SIROLIMUS
     Indication: Infantile haemangioma
     Dosage: 3 MG, DAILY (1 MG IN THE MORNING AND 2 MG BEFORE BED TIME)
     Dates: start: 202002
  2. RAPAMUNE [Suspect]
     Active Substance: SIROLIMUS
     Dosage: 2 MG (2 X 1 MG TABLET) TWICE DAILY
     Route: 048
  3. RAPAMUNE [Suspect]
     Active Substance: SIROLIMUS
     Dosage: 4 MG DAILY (FOR 25 DAYS AT A TIME)
  4. RAPAMUNE [Suspect]
     Active Substance: SIROLIMUS
     Dosage: 4 MG DAILY (FOR 25 DAYS AT A TIME)
  5. BENZOCAINE [Concomitant]
     Active Substance: BENZOCAINE
     Dosage: USE 60 APPLICATION ON MUCUS MEMBRANE TWICE DAILY
  6. NADOLOL [Concomitant]
     Active Substance: NADOLOL
     Dosage: TAKE 1.5 TABLET (60 MILLIGRAM) BY MOUTH ONCE DAILY
     Route: 048

REACTIONS (16)
  - Brain neoplasm [Unknown]
  - Platelet count increased [Unknown]
  - Reticulocyte count increased [Unknown]
  - Blood triglycerides increased [Unknown]
  - Joint swelling [Unknown]
  - Joint stiffness [Unknown]
  - Platelet count increased [Unknown]
  - Red cell distribution width increased [Unknown]
  - Reticulocyte count decreased [Unknown]
  - Blood fibrinogen increased [Unknown]
  - Blood thyroid stimulating hormone decreased [Unknown]
  - Off label use [Unknown]
  - Product use in unapproved indication [Unknown]
  - Drug effective for unapproved indication [Unknown]
  - Product use issue [Unknown]
  - Product dose omission issue [Unknown]

NARRATIVE: CASE EVENT DATE: 20200201
